FAERS Safety Report 10136495 (Version 1)
Quarter: 2014Q2

REPORT INFORMATION
  Report Type: Spontaneous
  Country: US (occurrence: None)
  Receive Date: 20140425
  Receipt Date: 20140425
  Transmission Date: 20141212
  Serious: Yes (Other)
  Sender: FDA-Public Use
  Company Number: 9039997-2014-00023

PATIENT
  Age: 58 Year
  Sex: Female

DRUGS (1)
  1. LEVULAN KERASTICK TOPICAL SOLUTION 20% [Suspect]
     Indication: ACTINIC KERATOSIS
     Dosage: SINGLE
     Route: 061
     Dates: start: 20140331

REACTIONS (2)
  - Punctate keratitis [None]
  - Herpes simplex [None]
